FAERS Safety Report 14700235 (Version 4)
Quarter: 2022Q4

REPORT INFORMATION
  Report Type: Report from Study
  Country: NL (occurrence: NL)
  Receive Date: 20180330
  Receipt Date: 20221208
  Transmission Date: 20230113
  Serious: Yes (Other)
  Sender: FDA-Public Use
  Company Number: NL-TEVA-2018-NL-874522

PATIENT
  Age: 13 Month
  Sex: Male

DRUGS (3)
  1. VORICONAZOLE [Interacting]
     Active Substance: VORICONAZOLE
     Indication: Aspergillus infection
     Dosage: LOADING DOSE OF 9 MG/KG THRICE A DAY
     Route: 042
  2. VORICONAZOLE [Interacting]
     Active Substance: VORICONAZOLE
     Dosage: MAINTENANCE DOSE OF 8 MG/KG THRICE A DAY
     Route: 042
  3. ITRACONAZOLE [Interacting]
     Active Substance: ITRACONAZOLE
     Indication: Product used for unknown indication
     Route: 065

REACTIONS (3)
  - Drug interaction [Unknown]
  - Hepatotoxicity [Unknown]
  - Cardiovascular insufficiency [Unknown]
